FAERS Safety Report 5852303-1 (Version None)
Quarter: 2008Q3

REPORT INFORMATION
  Report Type: 
  Country: None (occurrence: None)
  Receive Date: 20080819
  Receipt Date: 20080804
  Transmission Date: 20090109
  Serious: Yes (Death, Hospitalization)
  Sender: FDA-Public Use
  Company Number: KADN20080008

PATIENT
  Age: 59 Year
  Sex: Female

DRUGS (3)
  1. MORPHINE [Suspect]
     Indication: MIGRAINE
     Dates: start: 20060101, end: 20060101
  2. BUTALBITAL ACETAMINOPHEN AND CAFFEINE [Suspect]
     Indication: MIGRAINE
     Dates: start: 20060101, end: 20060101
  3. OXYCODONE HCL [Suspect]

REACTIONS (8)
  - ACIDOSIS [None]
  - ALANINE AMINOTRANSFERASE INCREASED [None]
  - ASPARTATE AMINOTRANSFERASE INCREASED [None]
  - BRADYCARDIA [None]
  - EPISTAXIS [None]
  - HYPERAMMONAEMIA [None]
  - HYPOTENSION [None]
  - INTERNATIONAL NORMALISED RATIO INCREASED [None]
